FAERS Safety Report 8170083-4 (Version None)
Quarter: 2012Q1

REPORT INFORMATION
  Report Type: 
  Country: None (occurrence: None)
  Receive Date: 20120228
  Receipt Date: 20120223
  Transmission Date: 20120608
  Serious: Yes (Other)
  Sender: FDA-Public Use
  Company Number: US-PFIZER INC-2012049118

PATIENT

DRUGS (2)
  1. CHANTIX [Suspect]
     Dosage: 0.5 MG, 2X/DAY
  2. NAPROXEN [Suspect]
     Dosage: UNK

REACTIONS (6)
  - RESPIRATORY DISTRESS [None]
  - OEDEMA PERIPHERAL [None]
  - BLISTER [None]
  - HERPES ZOSTER [None]
  - HYPERSENSITIVITY [None]
  - RASH [None]
